FAERS Safety Report 11971657 (Version 1)
Quarter: 2016Q1

REPORT INFORMATION
  Report Type: Spontaneous
  Country: US (occurrence: US)
  Receive Date: 20160128
  Receipt Date: 20160128
  Transmission Date: 20160526
  Serious: Yes (Other)
  Sender: FDA-Public Use
  Company Number: US-JNJFOC-20160112048

PATIENT
  Sex: Female
  Weight: 49.9 kg

DRUGS (9)
  1. TYLENOL EXTRA STRENGTH [Suspect]
     Active Substance: ACETAMINOPHEN
     Indication: BACK PAIN
     Dosage: 1 CAPLET.
     Route: 048
     Dates: end: 20160114
  2. DRUGS FOR URINARY FREQUENCY AND INCONTINENCE [Concomitant]
     Indication: POLLAKIURIA
     Route: 065
  3. PRESERVISION [Concomitant]
     Active Substance: MINERALS\VITAMINS
     Indication: VITAMIN A DEFICIENCY EYE DISORDER
     Dosage: 1 TABLET DAILY, INTERVAL: 1 YEAR
     Route: 065
     Dates: start: 2015
  4. AMLODIPINE [Concomitant]
     Active Substance: AMLODIPINE BESYLATE
     Indication: HYPERTENSION
     Route: 065
  5. OPHTHALMOLOGICALS [Concomitant]
     Indication: VISUAL IMPAIRMENT
     Dosage: 2 DROPS
     Route: 065
  6. MULTIVITAMINS [Concomitant]
     Active Substance: VITAMINS
     Indication: ROUTINE HEALTH MAINTENANCE
     Dosage: 6 TABLETS DAILY
     Route: 065
  7. ALPRAZOLAM. [Concomitant]
     Active Substance: ALPRAZOLAM
     Indication: ANXIETY
     Dosage: AS NEEDED
     Route: 065
  8. BENICAR [Concomitant]
     Active Substance: OLMESARTAN MEDOXOMIL
     Indication: HYPERTENSION
     Route: 065
  9. B6 + B12 FOLIC ACID [Concomitant]
     Indication: MEMORY IMPAIRMENT
     Dosage: 1 TABLET DAILY
     Route: 065

REACTIONS (3)
  - Dyspepsia [Not Recovered/Not Resolved]
  - Drug effect incomplete [Unknown]
  - Haematochezia [Not Recovered/Not Resolved]
